FAERS Safety Report 7148442-8 (Version None)
Quarter: 2010Q4

REPORT INFORMATION
  Report Type: 
  Country: None (occurrence: None)
  Receive Date: 20101126
  Receipt Date: 20101112
  Transmission Date: 20110411
  Serious: Yes (Other)
  Sender: FDA-Public Use
  Company Number: 020966

PATIENT
  Sex: Female
  Weight: 46 kg

DRUGS (3)
  1. KEPPRA [Suspect]
     Indication: EPILEPSY
     Dosage: (500 MG BID ORAL)
     Route: 048
     Dates: start: 20101018, end: 20101019
  2. PREDNISONE [Concomitant]
  3. ALLEGRA /01314202/ [Concomitant]

REACTIONS (2)
  - CONVULSION [None]
  - VISUAL IMPAIRMENT [None]
